FAERS Safety Report 5225552-3 (Version None)
Quarter: 2007Q1

REPORT INFORMATION
  Report Type: 
  Country: None (occurrence: None)
  Receive Date: 20070131
  Receipt Date: 20070119
  Transmission Date: 20070707
  Serious: Yes (Other)
  Sender: FDA-Public Use
  Company Number: SE-PFIZER INC-2007006805

PATIENT
  Sex: Male
  Weight: 114 kg

DRUGS (6)
  1. SOMAVERT [Suspect]
     Indication: ACROMEGALY
     Route: 058
  2. HYDROCORTISONE [Concomitant]
  3. LEVOTHYROXINE SODIUM [Concomitant]
  4. TESTOSTERONE [Concomitant]
  5. HYDROCHLOROTHIAZIDE [Concomitant]
  6. GLUCOSAMINE [Concomitant]

REACTIONS (1)
  - DEEP VEIN THROMBOSIS [None]
